FAERS Safety Report 23838819 (Version 2)
Quarter: 2024Q4

REPORT INFORMATION
  Report Type: Report from Study
  Country: US (occurrence: US)
  Receive Date: 20240509
  Receipt Date: 20241224
  Transmission Date: 20250115
  Serious: No
  Sender: ARGENX BVBA
  Company Number: US-ARGENX-2024-ARGX-US000696

PATIENT

DRUGS (1)
  1. VYVGART HYTRULO [Suspect]
     Active Substance: EFGARTIGIMOD ALFA\HYALURONIDASE-QVFC
     Indication: Myasthenia gravis
     Dosage: 1008 MG/11,200 UNITS
     Route: 058
     Dates: start: 20240112

REACTIONS (19)
  - Muscular weakness [Not Recovered/Not Resolved]
  - Impaired work ability [Not Recovered/Not Resolved]
  - Balance disorder [Unknown]
  - Motor dysfunction [Not Recovered/Not Resolved]
  - Mastication disorder [Not Recovered/Not Resolved]
  - Insomnia [Unknown]
  - Dysarthria [Not Recovered/Not Resolved]
  - Hypoaesthesia [Not Recovered/Not Resolved]
  - Migraine [Unknown]
  - Injection site erythema [Recovering/Resolving]
  - Injection site erythema [Recovering/Resolving]
  - Injection site erythema [Unknown]
  - Injection site exfoliation [Unknown]
  - Injection site erythema [Unknown]
  - Dysarthria [Unknown]
  - Speech disorder [Unknown]
  - Balance disorder [Unknown]
  - Lacrimation increased [Unknown]
  - Fatigue [Unknown]

NARRATIVE: CASE EVENT DATE: 20240125
